FAERS Safety Report 6668535-9 (Version None)
Quarter: 2010Q2

REPORT INFORMATION
  Report Type: 
  Country: None (occurrence: None)
  Receive Date: 20100401
  Receipt Date: 20100329
  Transmission Date: 20101027
  Serious: Yes (Death)
  Sender: FDA-Public Use
  Company Number: OMPQ-NO-1003S-0185

PATIENT
  Age: 59 Year
  Sex: Male

DRUGS (1)
  1. OMNIPAQUE 350 [Suspect]
     Indication: DRUG USE FOR UNKNOWN INDICATION
     Dosage: 100 ML, SINGLE DOSE, I.V.
     Route: 042
     Dates: start: 20100313, end: 20100313

REACTIONS (6)
  - BURNING SENSATION [None]
  - CONVULSION [None]
  - ERYTHEMA [None]
  - MOVEMENT DISORDER [None]
  - NAUSEA [None]
  - SUDDEN DEATH [None]
